FAERS Safety Report 10182623 (Version 3)
Quarter: 2014Q2

REPORT INFORMATION
  Report Type: Spontaneous
  Country: US (occurrence: None)
  Receive Date: 20140516
  Receipt Date: 20140604
  Transmission Date: 20141212
  Serious: Yes (Death)
  Sender: FDA-Public Use
  Company Number: UTC-048407

PATIENT
  Age: 82 Year
  Sex: Female
  Weight: 60.8 kg

DRUGS (2)
  1. TYVASO [Suspect]
     Indication: PULMONARY ARTERIAL HYPERTENSION
     Dosage: 18-72 BREATHS
     Route: 055
     Dates: start: 20091123
  2. COUMADIN (WARFARIN SODIUM) [Concomitant]

REACTIONS (5)
  - Death [None]
  - Respiratory failure [None]
  - Cor pulmonale [None]
  - Pneumonia [None]
  - Pulmonary arterial hypertension [None]
